FAERS Safety Report 6751743-6 (Version None)
Quarter: 2010Q2

REPORT INFORMATION
  Report Type: 
  Country: None (occurrence: None)
  Receive Date: 20100602
  Receipt Date: 20100520
  Transmission Date: 20101027
  Serious: Yes (Other)
  Sender: FDA-Public Use
  Company Number: US-CELGENEUS-163-21880-10040525

PATIENT
  Age: 62 Year
  Sex: Male
  Weight: 94.4 kg

DRUGS (11)
  1. REVLIMID [Suspect]
     Route: 048
     Dates: start: 20100319, end: 20100329
  2. REVLIMID [Suspect]
     Route: 048
     Dates: start: 20100330, end: 20100401
  3. DEXAMETHASONE [Suspect]
     Route: 048
     Dates: start: 20100319, end: 20100329
  4. DEXAMETHASONE [Suspect]
     Route: 048
     Dates: start: 20100330
  5. BORTEZOMIB [Suspect]
     Route: 051
     Dates: start: 20100319, end: 20100329
  6. BORTEZOMIB [Suspect]
     Route: 051
  7. BACTRIM DS [Suspect]
     Indication: DRUG USE FOR UNKNOWN INDICATION
     Route: 065
  8. ASPIRIN [Concomitant]
     Indication: DRUG USE FOR UNKNOWN INDICATION
     Route: 048
     Dates: start: 20100319
  9. COUMADIN [Concomitant]
     Route: 065
     Dates: start: 20100201, end: 20100329
  10. COUMADIN [Concomitant]
     Route: 065
     Dates: start: 20100330
  11. ZOMETA [Concomitant]
     Indication: DRUG USE FOR UNKNOWN INDICATION
     Route: 065

REACTIONS (7)
  - BACK PAIN [None]
  - DECREASED APPETITE [None]
  - DEHYDRATION [None]
  - DIARRHOEA [None]
  - EXFOLIATIVE RASH [None]
  - HAEMOGLOBIN [None]
  - HYPONATRAEMIA [None]
